FAERS Safety Report 6079889-9 (Version None)
Quarter: 2009Q1

REPORT INFORMATION
  Report Type: 
  Country: None (occurrence: None)
  Receive Date: 20090217
  Receipt Date: 20090205
  Transmission Date: 20090719
  Serious: Yes (Hospitalization)
  Sender: FDA-Public Use
  Company Number: JP-ROCHE-614062

PATIENT
  Sex: Male

DRUGS (4)
  1. PEGASYS [Suspect]
     Indication: HEPATITIS C
     Route: 058
     Dates: start: 20081119
  2. COPEGUS [Suspect]
     Indication: HEPATITIS C
     Route: 048
  3. DEPAS [Concomitant]
     Dosage: ORAL FORMULATION (NOT OTHERWISE SPECIFIED)
     Route: 048
  4. BLOPRESS [Concomitant]
     Route: 048

REACTIONS (1)
  - MUSCULAR WEAKNESS [None]
